FAERS Safety Report 9313067 (Version 1)
Quarter: 2013Q2

REPORT INFORMATION
  Report Type: Spontaneous
  Country: US (occurrence: US)
  Receive Date: 20130528
  Receipt Date: 20130528
  Transmission Date: 20140414
  Serious: No
  Sender: FDA-Public Use
  Company Number: US-ABBOTT-13P-163-1072184-00

PATIENT
  Sex: Male
  Weight: 95.79 kg

DRUGS (6)
  1. ANDROGEL [Suspect]
     Indication: BLOOD TESTOSTERONE DECREASED
     Dosage: 2 PUMPS DAILY
     Dates: start: 201204
  2. UNKNOWN MEDICATION [Concomitant]
     Indication: BLOOD OESTROGEN INCREASED
  3. ADVAIR [Concomitant]
     Indication: ASTHMA
  4. SINGULAIR [Concomitant]
     Indication: SEASONAL ALLERGY
  5. FLONASE [Concomitant]
     Indication: SEASONAL ALLERGY
  6. PROTONIX [Concomitant]
     Indication: GASTROOESOPHAGEAL REFLUX DISEASE

REACTIONS (1)
  - Blood oestrogen increased [Recovered/Resolved]
